FAERS Safety Report 15760892 (Version 3)
Quarter: 2019Q2

REPORT INFORMATION
  Report Type: Spontaneous
  Country: US (occurrence: US)
  Receive Date: 20181226
  Receipt Date: 20190626
  Transmission Date: 20190711
  Serious: No
  Sender: FDA-Public Use
  Company Number: US-PFIZER INC-2018474982

PATIENT
  Age: 64 Year
  Sex: Female
  Weight: 57 kg

DRUGS (2)
  1. LYRICA [Suspect]
     Active Substance: PREGABALIN
     Indication: CANCER PAIN
     Dosage: 75 MG, 3X/DAY
     Route: 048
     Dates: start: 20181018, end: 20181117
  2. LYRICA [Suspect]
     Active Substance: PREGABALIN
     Indication: NEURALGIA
     Dosage: 75 MG, 3X/DAY
     Route: 048
     Dates: start: 2018

REACTIONS (1)
  - Eye disorder [Not Recovered/Not Resolved]
